FAERS Safety Report 4445476-9 (Version None)
Quarter: 2004Q2

REPORT INFORMATION
  Report Type: 
  Country: None (occurrence: None)
  Receive Date: 20040625
  Receipt Date: 20030625
  Transmission Date: 20050107
  Serious: Yes (Other)
  Sender: FDA-Public Use
  Company Number: 229652

PATIENT

DRUGS (1)
  1. NOVOSEVEN [Suspect]
     Indication: BONE MARROW TRANSPLANT

REACTIONS (1)
  - DISSEMINATED INTRAVASCULAR COAGULATION [None]
